FAERS Safety Report 12373837 (Version 3)
Quarter: 2016Q3

REPORT INFORMATION
  Report Type: Spontaneous
  Country: RU (occurrence: RU)
  Receive Date: 20160517
  Receipt Date: 20160925
  Transmission Date: 20161109
  Serious: Yes (Hospitalization)
  Sender: FDA-Public Use
  Company Number: RU-ROCHE-1756388

PATIENT
  Age: 46 Year
  Sex: Female

DRUGS (6)
  1. PACLITAXEL. [Suspect]
     Active Substance: PACLITAXEL
     Indication: HER-2 POSITIVE BREAST CANCER
     Dosage: TOTAL SIX COURSES
     Route: 065
     Dates: start: 2014, end: 2014
  2. DOXORUBICIN [Suspect]
     Active Substance: DOXORUBICIN
     Dosage: 280 GRAM EVERY CYCLE, TWO COURSES IN FEB/MAR 2014
     Route: 065
  3. DOXORUBICIN [Suspect]
     Active Substance: DOXORUBICIN
     Indication: HER-2 POSITIVE BREAST CANCER
     Dosage: 6 COURSES
     Route: 065
     Dates: start: 20121108, end: 201302
  4. TRASTUZUMAB [Suspect]
     Active Substance: TRASTUZUMAB
     Indication: HER-2 POSITIVE BREAST CANCER
     Route: 042
     Dates: start: 20130514, end: 20140109
  5. PACLITAXEL. [Suspect]
     Active Substance: PACLITAXEL
     Indication: METASTASES TO LIVER
  6. TRASTUZUMAB [Suspect]
     Active Substance: TRASTUZUMAB
     Route: 042
     Dates: start: 20140729

REACTIONS (5)
  - Cytotoxic cardiomyopathy [Not Recovered/Not Resolved]
  - Hydrothorax [Recovered/Resolved]
  - Pericardial effusion [Not Recovered/Not Resolved]
  - Cardiac failure chronic [Not Recovered/Not Resolved]
  - Ventricular arrhythmia [Unknown]

NARRATIVE: CASE EVENT DATE: 2014
